FAERS Safety Report 11167403 (Version 2)
Quarter: 2015Q2

REPORT INFORMATION
  Report Type: Report from Study
  Country: AU (occurrence: AU)
  Receive Date: 20150605
  Receipt Date: 20150630
  Transmission Date: 20150821
  Serious: Yes (Other)
  Sender: FDA-Public Use
  Company Number: AU-BIOGENIDEC-2015BI074590

PATIENT
  Age: 60 Year
  Sex: Female

DRUGS (1)
  1. PLEGRIDY [Suspect]
     Active Substance: PEGINTERFERON BETA-1A
     Indication: PRODUCT USED FOR UNKNOWN INDICATION
     Route: 058
     Dates: start: 20150509

REACTIONS (5)
  - Blood glucose increased [Not Recovered/Not Resolved]
  - Blood test abnormal [Not Recovered/Not Resolved]
  - Alanine aminotransferase [Not Recovered/Not Resolved]
  - Skin cancer [Not Recovered/Not Resolved]
  - Aspartate aminotransferase [Not Recovered/Not Resolved]

NARRATIVE: CASE EVENT DATE: 20150516
